FAERS Safety Report 22396090 (Version 1)
Quarter: 2023Q2

REPORT INFORMATION
  Report Type: Spontaneous
  Country: US (occurrence: US)
  Receive Date: 20230601
  Receipt Date: 20230601
  Transmission Date: 20230722
  Serious: No
  Sender: FDA-Public Use
  Company Number: US-APIL-2313417US

PATIENT
  Sex: Female

DRUGS (1)
  1. QULIPTA [Suspect]
     Active Substance: ATOGEPANT
     Indication: Product used for unknown indication
     Dates: start: 20220701

REACTIONS (5)
  - Disturbance in attention [Unknown]
  - Insomnia [Unknown]
  - Therapy interrupted [Unknown]
  - Migraine [Unknown]
  - Fatigue [Unknown]
